FAERS Safety Report 7445631-X (Version None)
Quarter: 2011Q2

REPORT INFORMATION
  Report Type: 
  Country: None (occurrence: None)
  Receive Date: 20110429
  Receipt Date: 20110427
  Transmission Date: 20111010
  Serious: Yes (Other)
  Sender: FDA-Public Use
  Company Number: BR-ROCHE-773697

PATIENT
  Sex: Female
  Weight: 56 kg

DRUGS (2)
  1. ACCUTANE [Suspect]
     Route: 048
     Dates: end: 20110401
  2. ACCUTANE [Suspect]
     Indication: ACNE
     Route: 048
     Dates: start: 20080101

REACTIONS (4)
  - DEPRESSION [None]
  - ACNE [None]
  - PANIC DISORDER [None]
  - DRY EYE [None]
